FAERS Safety Report 20768900 (Version 1)
Quarter: 2022Q2

REPORT INFORMATION
  Report Type: Spontaneous
  Country: US (occurrence: None)
  Receive Date: 20220428
  Receipt Date: 20220428
  Transmission Date: 20220721
  Serious: Yes (Hospitalization)
  Sender: FDA-Public Use
  Company Number: None

PATIENT
  Sex: Female

DRUGS (4)
  1. MYCOPHENOLIC ACID [Suspect]
     Active Substance: MYCOPHENOLIC ACID
     Indication: Pulmonary arterial hypertension
     Dosage: FREQUENCY: TWICE A DAY?
     Route: 048
     Dates: start: 201905
  2. MYCOPHENOLIC ACID [Suspect]
     Active Substance: MYCOPHENOLIC ACID
     Indication: Systemic sclerosis pulmonary
  3. TADALAFIL [Suspect]
     Active Substance: TADALAFIL
     Indication: Systemic sclerosis pulmonary
     Dosage: FREQUENCY : DAILY;?
     Route: 048
     Dates: start: 202104
  4. TADALAFIL [Suspect]
     Active Substance: TADALAFIL
     Indication: Pulmonary arterial hypertension

REACTIONS (1)
  - Pneumonia [None]
